FAERS Safety Report 10934703 (Version 2)
Quarter: 2015Q2

REPORT INFORMATION
  Report Type: Spontaneous
  Country: US (occurrence: US)
  Receive Date: 20150320
  Receipt Date: 20150416
  Transmission Date: 20150821
  Serious: Yes (Other)
  Sender: FDA-Public Use
  Company Number: US-009507513-1503USA006630

PATIENT
  Age: 44 Year
  Sex: Female
  Weight: 65.76 kg

DRUGS (2)
  1. IMITREX [Suspect]
     Active Substance: SUMATRIPTAN\SUMATRIPTAN SUCCINATE
     Indication: MIGRAINE
     Dosage: UNK
  2. MAXALT [Suspect]
     Active Substance: RIZATRIPTAN BENZOATE
     Indication: MIGRAINE
     Dosage: UNK
     Route: 048
     Dates: start: 1995, end: 2008

REACTIONS (3)
  - Drug ineffective [Unknown]
  - Brain operation [Unknown]
  - Migraine [Unknown]

NARRATIVE: CASE EVENT DATE: 2004
